FAERS Safety Report 6746930-7 (Version None)
Quarter: 2010Q2

REPORT INFORMATION
  Report Type: 
  Country: None (occurrence: None)
  Receive Date: 20100528
  Receipt Date: 20100308
  Transmission Date: 20101027
  Serious: No
  Sender: FDA-Public Use
  Company Number: US-ASTRAZENECA-2010SE10781

PATIENT
  Sex: Female

DRUGS (1)
  1. PRILOSEC OTC [Suspect]
     Dosage: DAILY
     Route: 048

REACTIONS (3)
  - DIZZINESS [None]
  - DYSGEUSIA [None]
  - THROAT IRRITATION [None]
